FAERS Safety Report 9172020 (Version 2)
Quarter: 2013Q2

REPORT INFORMATION
  Report Type: Spontaneous
  Country: US (occurrence: US)
  Receive Date: 20130319
  Receipt Date: 20130425
  Transmission Date: 20140414
  Serious: Yes (Other)
  Sender: FDA-Public Use
  Company Number: US-VERTEX PHARMACEUTICALS INC.-2013-003703

PATIENT
  Age: 65 Year
  Sex: Male
  Weight: 74 kg

DRUGS (12)
  1. INCIVEK [Suspect]
     Indication: HEPATITIS C
     Dosage: UNK
     Route: 048
     Dates: start: 2011
  2. INCIVEK [Suspect]
     Dosage: 750 MG, TID
     Route: 048
     Dates: start: 201302
  3. RIBAVIRIN [Suspect]
     Indication: HEPATITIS C
     Dosage: UNK
     Route: 048
     Dates: start: 2011
  4. RIBAVIRIN [Suspect]
     Dosage: 600 MG, BID
     Route: 048
  5. RIBAVIRIN [Suspect]
     Dosage: 600 MG, QD
     Route: 048
  6. RIBAVIRIN [Suspect]
     Dosage: 400 MG, QD
     Route: 048
  7. PEGASYS [Suspect]
     Indication: HEPATITIS C
     Dosage: UNK
     Route: 058
     Dates: start: 2011
  8. PEGASYS [Suspect]
     Dosage: 180 ?G, QW
     Route: 058
     Dates: start: 201302
  9. METOPROLOL [Concomitant]
     Indication: HYPERTENSION
     Dosage: QD
     Route: 048
  10. AMLODIPINE [Concomitant]
     Indication: HYPERTENSION
  11. INSULIN [Concomitant]
  12. TARCOLIMUS [Concomitant]
     Dosage: 0.5 MG, QW

REACTIONS (5)
  - Hepatic cancer recurrent [Recovered/Resolved]
  - Blood pressure decreased [Recovered/Resolved]
  - Off label use [Not Recovered/Not Resolved]
  - Haemoglobin decreased [Not Recovered/Not Resolved]
  - Haemorrhoids [Not Recovered/Not Resolved]
